FAERS Safety Report 18687115 (Version 3)
Quarter: 2021Q1

REPORT INFORMATION
  Report Type: Other
  Country: CA (occurrence: CA)
  Receive Date: 20201231
  Receipt Date: 20210111
  Transmission Date: 20210419
  Serious: Yes (Hospitalization, Other)
  Sender: FDA-Public Use
  Company Number: CA-ROCHE-2738682

PATIENT
  Age: 37 Year
  Sex: Female

DRUGS (14)
  1. ACTEMRA [Suspect]
     Active Substance: TOCILIZUMAB
     Indication: STILL^S DISEASE
     Dosage: DRUG DOSE FIRST ADMINISTERED IS 600 MG MILLIGRAM(S)
     Route: 042
     Dates: start: 20200203, end: 20201013
  2. COLACE [Concomitant]
     Active Substance: DOCUSATE SODIUM
  3. SULFATRIM [Concomitant]
     Active Substance: SULFAMETHOXAZOLE\TRIMETHOPRIM
  4. PREDNISONE. [Concomitant]
     Active Substance: PREDNISONE
  5. CETRIZINE [Concomitant]
     Active Substance: CETIRIZINE HYDROCHLORIDE
  6. PROLIA [Concomitant]
     Active Substance: DENOSUMAB
  7. CELEBREX [Concomitant]
     Active Substance: CELECOXIB
  8. METHOTREXATE. [Concomitant]
     Active Substance: METHOTREXATE
     Route: 058
     Dates: start: 202009
  9. SYNTHROID [Concomitant]
     Active Substance: LEVOTHYROXINE SODIUM
  10. HYDROXYZINE [Concomitant]
     Active Substance: HYDROXYZINE HYDROCHLORIDE
  11. ACTEMRA [Suspect]
     Active Substance: TOCILIZUMAB
     Route: 042
     Dates: start: 20201216
  12. PANTOLOC [Concomitant]
     Active Substance: PANTOPRAZOLE SODIUM
  13. FOLIC ACID. [Concomitant]
     Active Substance: FOLIC ACID
  14. SOLU?MEDROL [Concomitant]
     Active Substance: METHYLPREDNISOLONE SODIUM SUCCINATE
     Route: 042

REACTIONS (23)
  - Hypertension [Unknown]
  - Tachycardia [Unknown]
  - Pulmonary embolism [Unknown]
  - Chronic spontaneous urticaria [Unknown]
  - Cellulitis [Unknown]
  - Multiple organ dysfunction syndrome [Unknown]
  - Hypertriglyceridaemia [Unknown]
  - Ejection fraction decreased [Unknown]
  - Dilatation ventricular [Unknown]
  - Cardiomyopathy [Unknown]
  - Oedema [Not Recovered/Not Resolved]
  - Leukocytosis [Unknown]
  - C-reactive protein increased [Unknown]
  - Haemophagocytic lymphohistiocytosis [Unknown]
  - Inflammatory marker increased [Unknown]
  - Serum ferritin increased [Unknown]
  - Sepsis [Unknown]
  - Right ventricular dysfunction [Unknown]
  - Blood triglycerides increased [Unknown]
  - Pyrexia [Unknown]
  - General physical health deterioration [Unknown]
  - Acute kidney injury [Unknown]
  - Hypokinesia [Unknown]

NARRATIVE: CASE EVENT DATE: 202011
